FAERS Safety Report 9354288 (Version 1)
Quarter: 2013Q2

REPORT INFORMATION
  Report Type: Spontaneous
  Country: US (occurrence: US)
  Receive Date: 20130618
  Receipt Date: 20130618
  Transmission Date: 20140414
  Serious: No
  Sender: FDA-Public Use
  Company Number: US-COVIDIEN/TYCO HEALTHCARE/MALLINCKRODT-T201202804

PATIENT
  Age: 65 Year
  Sex: Female

DRUGS (11)
  1. ULTRATAG RBC [Suspect]
     Indication: MULTIPLE GATED ACQUISITION SCAN
     Dosage: UNK, SINGLE
     Dates: start: 20120712, end: 20120712
  2. ULTRA-TECHNEKOW DTE GENERATOR [Concomitant]
     Dosage: UNK
  3. HERCEPTIN [Concomitant]
  4. XELODA [Concomitant]
  5. TYKERB [Concomitant]
  6. GEMZAR [Concomitant]
  7. VESOCARE [Concomitant]
  8. COREG [Concomitant]
  9. ALTACE [Concomitant]
  10. OMEPRAZOLE [Concomitant]
  11. VITAMINS /90003601/ [Concomitant]

REACTIONS (1)
  - Drug ineffective [Unknown]
